FAERS Safety Report 6910686-5 (Version None)
Quarter: 2010Q3

REPORT INFORMATION
  Report Type: 
  Country: None (occurrence: None)
  Receive Date: 20100806
  Receipt Date: 20100731
  Transmission Date: 20110219
  Serious: Yes (Death)
  Sender: FDA-Public Use
  Company Number: CO-ROCHE-718295

PATIENT
  Sex: Male

DRUGS (1)
  1. AVASTIN [Suspect]
     Indication: GLIOBLASTOMA MULTIFORME
     Dosage: DOSING FREQUENCY: EVERY 14 DAYS
     Route: 042
     Dates: start: 20091105, end: 20100212

REACTIONS (1)
  - MALIGNANT NEOPLASM PROGRESSION [None]
